FAERS Safety Report 7986089-1 (Version None)
Quarter: 2011Q4

REPORT INFORMATION
  Report Type: 
  Country: None (occurrence: None)
  Receive Date: 20111216
  Receipt Date: 20110622
  Transmission Date: 20120403
  Serious: No
  Sender: FDA-Public Use
  Company Number: US-BRISTOL-MYERS SQUIBB COMPANY-15850001

PATIENT
  Age: 53 Year
  Sex: Male

DRUGS (2)
  1. ABILIFY [Suspect]
     Dosage: ADJUNCTIVE THERAPY
  2. CYMBALTA [Suspect]
     Indication: DEPRESSION

REACTIONS (2)
  - HYPOMANIA [None]
  - SEXUAL DYSFUNCTION [None]
